FAERS Safety Report 9537603 (Version 1)
Quarter: 2013Q3

REPORT INFORMATION
  Report Type: Spontaneous
  Country: US (occurrence: US)
  Receive Date: 20130919
  Receipt Date: 20130919
  Transmission Date: 20140515
  Serious: Yes (Other)
  Sender: FDA-Public Use
  Company Number: US-PFIZER INC-2013270341

PATIENT
  Age: 88 Year
  Sex: Female

DRUGS (1)
  1. LYRICA [Suspect]
     Dosage: 75 MG, 2X/DAY
     Dates: start: 201308, end: 20130909

REACTIONS (1)
  - Rash [Not Recovered/Not Resolved]
